FAERS Safety Report 16794968 (Version 1)
Quarter: 2019Q3

REPORT INFORMATION
  Report Type: Spontaneous
  Country: US (occurrence: US)
  Receive Date: 20190720
  Receipt Date: 20190720
  Transmission Date: 20191005
  Serious: Yes (Hospitalization)
  Sender: FDA-Public Use
  Company Number: None

PATIENT
  Sex: Female

DRUGS (7)
  1. DILANIN [Concomitant]
  2. METHOTREXATE. [Concomitant]
     Active Substance: METHOTREXATE
  3. PROLIA [Concomitant]
     Active Substance: DENOSUMAB
  4. FOLIC ACID. [Concomitant]
     Active Substance: FOLIC ACID
  5. HUMIRA [Suspect]
     Active Substance: ADALIMUMAB
     Indication: RHEUMATOID ARTHRITIS
     Route: 058
     Dates: start: 20170728
  6. TRAMADOL. [Concomitant]
     Active Substance: TRAMADOL
  7. MULTI VIT [Concomitant]
     Active Substance: VITAMINS

REACTIONS (2)
  - Ankle fracture [None]
  - Therapy cessation [None]
